FAERS Safety Report 9266182 (Version 4)
Quarter: 2015Q1

REPORT INFORMATION
  Report Type: Report from Study
  Country: DE (occurrence: DE)
  Receive Date: 20130502
  Receipt Date: 20150309
  Transmission Date: 20150721
  Serious: Yes (Hospitalization)
  Sender: FDA-Public Use
  Company Number: DE-ROCHE-1216990

PATIENT
  Age: 70 Year
  Sex: Female
  Weight: 67 kg

DRUGS (3)
  1. VEMURAFENIB [Suspect]
     Active Substance: VEMURAFENIB
     Indication: METASTATIC MALIGNANT MELANOMA
     Route: 048
     Dates: start: 20130409, end: 20130416
  2. THYROXIN [Concomitant]
     Active Substance: LEVOTHYROXINE
     Indication: GOITRE
     Dosage: DAILY
     Route: 048
     Dates: start: 1993
  3. VEMURAFENIB [Suspect]
     Active Substance: VEMURAFENIB
     Dosage: THE DATE OF THE MOST RECENT DOSE OF VEMURAFENIB PRIOR TO AE ONSET
     Route: 048
     Dates: start: 20130416, end: 20130418

REACTIONS (4)
  - Arthralgia [Recovering/Resolving]
  - Diarrhoea [Recovered/Resolved]
  - Dyspnoea [Recovered/Resolved]
  - Palmar-plantar erythrodysaesthesia syndrome [Recovered/Resolved]

NARRATIVE: CASE EVENT DATE: 20130413
